FAERS Safety Report 5793437-X (Version None)
Quarter: 2008Q2

REPORT INFORMATION
  Report Type: 
  Country: None (occurrence: None)
  Receive Date: 20080627
  Receipt Date: 20080618
  Transmission Date: 20081010
  Serious: Yes (Other)
  Sender: FDA-Public Use
  Company Number: US-JNJFOC-20080605089

PATIENT
  Sex: Male
  Weight: 81.65 kg

DRUGS (3)
  1. DURAGESIC-100 [Suspect]
     Indication: PAIN
     Route: 062
  2. LORTAB [Concomitant]
     Indication: BREAKTHROUGH PAIN
     Dosage: AS NEEDED
     Route: 048
  3. TRAMADOL HCL [Concomitant]
     Indication: BREAKTHROUGH PAIN
     Dosage: AS NEEDEED
     Route: 048

REACTIONS (2)
  - DRUG TOLERANCE [None]
  - NEUROPATHY PERIPHERAL [None]
